FAERS Safety Report 10175814 (Version 1)
Quarter: 2014Q2

REPORT INFORMATION
  Report Type: Spontaneous
  Country: NL (occurrence: NL)
  Receive Date: 20140516
  Receipt Date: 20140516
  Transmission Date: 20141212
  Serious: Yes (Hospitalization)
  Sender: FDA-Public Use
  Company Number: NL-AMGEN-NLDSP2014034604

PATIENT
  Age: 51 Year
  Sex: Female

DRUGS (2)
  1. ARANESP [Suspect]
     Indication: ANAEMIA
     Dosage: 500 MUG/ML, Q3WK
     Route: 058
     Dates: start: 20131224, end: 20140509
  2. XGEVA [Concomitant]
     Route: 065

REACTIONS (1)
  - Palliative care [Unknown]
